FAERS Safety Report 10032841 (Version 1)
Quarter: 2014Q1

REPORT INFORMATION
  Report Type: Other
  Country: CN (occurrence: CN)
  Receive Date: 20140324
  Receipt Date: 20140324
  Transmission Date: 20141002
  Serious: Yes (Life-Threatening, Hospitalization, Other)
  Sender: FDA-Public Use
  Company Number: CN-BRISTOL-MYERS SQUIBB COMPANY-20554432

PATIENT
  Sex: 0

DRUGS (6)
  1. ERBITUX SOLN FOR INF [Suspect]
     Indication: COLORECTAL CANCER METASTATIC
     Dosage: APR-2007?250MG/M2,1,1,WEEK
     Route: 041
     Dates: start: 200505, end: 200704
  2. 5-FLUOROURACIL [Suspect]
     Indication: COLORECTAL CANCER METASTATIC
     Route: 041
  3. LEUCOVORIN [Suspect]
     Indication: COLORECTAL CANCER METASTATIC
     Dosage: INTAVENOUS INFUSION,DISSOLVED IN 250 ML GLUCOSE SOLUTION
     Route: 041
  4. OXALIPLATIN [Suspect]
     Indication: COLORECTAL CANCER METASTATIC
     Route: 041
  5. ONDANSETRON HCL [Concomitant]
     Indication: PROPHYLAXIS
     Route: 042
  6. DEXAMETHASONE [Concomitant]
     Indication: PROPHYLAXIS
     Route: 041

REACTIONS (11)
  - Anaphylactic shock [Unknown]
  - Hypersensitivity [Recovered/Resolved]
  - Bone marrow failure [Unknown]
  - Neurotoxicity [Recovered/Resolved]
  - Renal impairment [Unknown]
  - Malignant neoplasm progression [Unknown]
  - Hepatic function abnormal [Unknown]
  - Diarrhoea [Unknown]
  - Nausea [Unknown]
  - Vomiting [Unknown]
  - Dermatitis acneiform [Unknown]
